FAERS Safety Report 13666971 (Version 1)
Quarter: 2017Q2

REPORT INFORMATION
  Report Type: Spontaneous
  Country: US (occurrence: US)
  Receive Date: 20170619
  Receipt Date: 20170619
  Transmission Date: 20170830
  Serious: No
  Sender: FDA-Public Use
  Company Number: US-ROCHE-1301140

PATIENT
  Sex: Female

DRUGS (5)
  1. XELODA [Suspect]
     Active Substance: CAPECITABINE
     Dosage: EVERY OTHER WEEK
     Route: 048
     Dates: start: 20110614
  2. XELODA [Suspect]
     Active Substance: CAPECITABINE
     Route: 048
     Dates: start: 20130914
  3. XELODA [Suspect]
     Active Substance: CAPECITABINE
     Indication: COLON CANCER
     Dosage: EVERY OTHER WEEK
     Route: 048
     Dates: start: 20110614
  4. XELODA [Suspect]
     Active Substance: CAPECITABINE
     Route: 065
  5. XELODA [Suspect]
     Active Substance: CAPECITABINE
     Route: 048
     Dates: start: 20110612

REACTIONS (9)
  - Nausea [Unknown]
  - Dry skin [Unknown]
  - Skin fissures [Unknown]
  - Blister [Unknown]
  - Skin exfoliation [Unknown]
  - Decreased appetite [Not Recovered/Not Resolved]
  - Fatigue [Unknown]
  - Erythema [Unknown]
  - Pain in extremity [Unknown]
